FAERS Safety Report 9015411 (Version 1)
Quarter: 2013Q1

REPORT INFORMATION
  Report Type: Spontaneous
  Country: US (occurrence: None)
  Receive Date: 20130102
  Receipt Date: 20130102
  Transmission Date: 20140127
  Serious: Yes (Death, Hospitalization)
  Sender: FDA-Public Use
  Company Number: IMP_06124_2012

PATIENT
  Age: 57 Year
  Sex: Female

DRUGS (12)
  1. METFORMIN [Suspect]
     Indication: PRODUCT USED FOR UNKNOWN INDICATION
     Dosage: [NOT THE PRESCRIBED AMOUNT]
     Route: 048
  2. DRAIN CLEANER [Concomitant]
  3. MIRTAZAPINE [Concomitant]
  4. ATORVASTATIN [Concomitant]
  5. GLIPIZIDE [Concomitant]
  6. PIOGLITAZONE [Concomitant]
  7. LOSARTAN [Concomitant]
  8. LOSARTAN [Concomitant]
  9. CLONAZEPAM [Concomitant]
  10. UBIDECARENONE [Concomitant]
  11. ASPIRIN [Concomitant]
  12. CHILDRENS CHEWABLE VITAMINS [Concomitant]

REACTIONS (9)
  - Vomiting [None]
  - Diarrhoea [None]
  - Heart rate increased [None]
  - Blood sodium decreased [None]
  - Blood glucose increased [None]
  - Depressed level of consciousness [None]
  - Hypotension [None]
  - Haemodialysis [None]
  - Toxicity to various agents [None]
